FAERS Safety Report 7069218-6 (Version None)
Quarter: 2010Q4

REPORT INFORMATION
  Report Type: 
  Country: None (occurrence: None)
  Receive Date: 20101028
  Receipt Date: 20101020
  Transmission Date: 20110411
  Serious: Yes (Other)
  Sender: FDA-Public Use
  Company Number: B0681627A

PATIENT
  Sex: Female

DRUGS (7)
  1. REQUIP [Suspect]
     Indication: HYPERTENSION
     Dosage: 2MG PER DAY
     Route: 048
     Dates: start: 20100914, end: 20101011
  2. REQUIP [Suspect]
     Dosage: 4MG PER DAY
     Route: 048
     Dates: start: 20101008, end: 20101011
  3. BISOPROLOL FUMARATE [Concomitant]
     Dosage: 3.75MG PER DAY
     Route: 048
     Dates: start: 20070101
  4. LUMIGAN [Concomitant]
     Dosage: 1DROP PER DAY
     Route: 061
     Dates: start: 20100101
  5. MICARDIS HCT [Concomitant]
     Dosage: 1TAB PER DAY
     Route: 048
     Dates: start: 20070101
  6. SINEMET [Concomitant]
     Dosage: 1TAB PER DAY
     Route: 048
     Dates: start: 20030101
  7. LORAZEPAM [Concomitant]
     Dosage: 1TAB PER DAY
     Route: 048
     Dates: start: 20100101

REACTIONS (4)
  - DIARRHOEA [None]
  - HAEMATOCHEZIA [None]
  - HYPOTENSION [None]
  - SYNCOPE [None]
